FAERS Safety Report 5743440-0 (Version None)
Quarter: 2008Q2

REPORT INFORMATION
  Report Type: 
  Country: None (occurrence: None)
  Receive Date: 20080519
  Receipt Date: 20080519
  Transmission Date: 20081010
  Serious: Yes (Death)
  Sender: FDA-Public Use
  Company Number: None

PATIENT
  Sex: Male
  Weight: 77.1115 kg

DRUGS (1)
  1. DIGOXIN [Suspect]
     Indication: CARDIOMYOPATHY
     Dosage: 0.25 MG. ONCE A DAY PO
     Route: 048
     Dates: start: 19940101, end: 20080408

REACTIONS (1)
  - PHARMACEUTICAL PRODUCT COMPLAINT [None]
